FAERS Safety Report 9440396 (Version 1)
Quarter: 2013Q3

REPORT INFORMATION
  Report Type: Spontaneous
  Country: IN (occurrence: IN)
  Receive Date: 20130805
  Receipt Date: 20130805
  Transmission Date: 20140515
  Serious: Yes (Hospitalization)
  Sender: FDA-Public Use
  Company Number: IN-B.I. PHARMACEUTICALS,INC./RIDGEFIELD-2013-BI-22750IG

PATIENT
  Age: 63 Year
  Sex: Female

DRUGS (2)
  1. PRADAXA [Suspect]
     Indication: CEREBROVASCULAR ACCIDENT PROPHYLAXIS
     Dosage: 220 MG
     Dates: start: 20120430
  2. PRADAXA [Suspect]
     Indication: ATRIAL FIBRILLATION

REACTIONS (1)
  - Pulmonary oedema [Unknown]
